FAERS Safety Report 8236471-2 (Version None)
Quarter: 2012Q1

REPORT INFORMATION
  Report Type: 
  Country: None (occurrence: None)
  Receive Date: 20120327
  Receipt Date: 20120319
  Transmission Date: 20120608
  Serious: Yes (Other)
  Sender: FDA-Public Use
  Company Number: US-US-EMD SERONO, INC.-7118517

PATIENT
  Sex: Female
  Weight: 79 kg

DRUGS (5)
  1. CYMBALTA [Concomitant]
     Indication: DEPRESSION
  2. REBIF [Suspect]
     Indication: MULTIPLE SCLEROSIS
     Route: 058
     Dates: start: 20110503, end: 20120306
  3. CLARITIN-D [Concomitant]
     Indication: HYPERSENSITIVITY
  4. VITAMIN [Concomitant]
     Indication: PRODUCT USED FOR UNKNOWN INDICATION
  5. CYMBALTA [Concomitant]
     Indication: ANXIETY

REACTIONS (3)
  - FATIGUE [None]
  - CHRONIC SINUSITIS [None]
  - INFLUENZA LIKE ILLNESS [None]
